FAERS Safety Report 14952159 (Version 2)
Quarter: 2018Q2

REPORT INFORMATION
  Report Type: Report from Study
  Country: CZ (occurrence: CZ)
  Receive Date: 20180530
  Receipt Date: 20180601
  Transmission Date: 20180711
  Serious: Yes (Hospitalization, Other)
  Sender: FDA-Public Use
  Company Number: CZ-PFIZER INC-2018215647

PATIENT
  Age: 70 Year
  Sex: Female

DRUGS (14)
  1. IRINOTECAN HCL [Suspect]
     Active Substance: IRINOTECAN HYDROCHLORIDE
     Dosage: 210 MG, CYCLIC
     Route: 041
     Dates: start: 20151027, end: 20151027
  2. FLUOROURACIL. [Suspect]
     Active Substance: FLUOROURACIL
     Dosage: 470 MG, CYCLIC
     Route: 040
     Dates: start: 20151027, end: 20151027
  3. AFLIBERCEPT [Suspect]
     Active Substance: AFLIBERCEPT
     Dosage: 224 MG, CYCLIC
     Route: 041
     Dates: start: 20151027, end: 20151027
  4. QUAMATEL [Concomitant]
     Active Substance: FAMOTIDINE
     Indication: PROPHYLAXIS
     Dates: start: 20151027, end: 20151027
  5. AFLIBERCEPT [Suspect]
     Active Substance: AFLIBERCEPT
     Indication: COLORECTAL CANCER METASTATIC
     Dosage: 224 MG, CYCLIC
     Route: 041
     Dates: start: 20151013, end: 20151013
  6. APAURIN [Concomitant]
     Active Substance: DIAZEPAM
     Indication: PROPHYLAXIS
     Dates: start: 20151027, end: 20151027
  7. CALTRATE /00944201/ [Concomitant]
     Active Substance: CALCIUM CARBONATE\CHOLECALCIFEROL
     Dosage: CALCII CARBONAS,COLECALCIFEROLI PULVIS(CALTRATE 600MG/400 IU D3P)
     Dates: start: 20151026
  8. FLUOROURACIL. [Suspect]
     Active Substance: FLUOROURACIL
     Dosage: 2810 MG, CYCLIC
     Route: 041
     Dates: start: 20151013, end: 20151013
  9. HELICID /00661201/ [Concomitant]
     Dates: start: 20151111, end: 20151130
  10. CALCIUM FOLINATE [Suspect]
     Active Substance: LEUCOVORIN CALCIUM
     Indication: COLORECTAL CANCER METASTATIC
     Dosage: 500 MG, CYCLIC
     Route: 041
     Dates: start: 20151013, end: 20151013
  11. FLUOROURACIL. [Suspect]
     Active Substance: FLUOROURACIL
     Dosage: 2810 MG, CYCLIC
     Route: 041
     Dates: start: 20151027, end: 20151027
  12. CALCIUM FOLINATE [Suspect]
     Active Substance: LEUCOVORIN CALCIUM
     Dosage: 500 MG, CYCLIC
     Route: 041
     Dates: start: 20151027, end: 20151027
  13. IRINOTECAN HCL [Suspect]
     Active Substance: IRINOTECAN HYDROCHLORIDE
     Indication: COLORECTAL CANCER METASTATIC
     Dosage: 210 MG, CYCLIC
     Route: 041
     Dates: start: 20151013, end: 20151013
  14. FLUOROURACIL. [Suspect]
     Active Substance: FLUOROURACIL
     Indication: COLORECTAL CANCER METASTATIC
     Dosage: 470 MG, CYCLIC
     Route: 040
     Dates: start: 20151013, end: 20151013

REACTIONS (7)
  - Leukopenia [Recovered/Resolved]
  - Hyperbilirubinaemia [Recovered/Resolved]
  - Hypertension [Not Recovered/Not Resolved]
  - Headache [Recovered/Resolved]
  - Blood creatinine increased [Recovered/Resolved]
  - Nausea [Recovered/Resolved]
  - Neutropenia [Recovered/Resolved]

NARRATIVE: CASE EVENT DATE: 20151109
